FAERS Safety Report 21292565 (Version 1)
Quarter: 2022Q3

REPORT INFORMATION
  Report Type: Spontaneous
  Country: JP (occurrence: JP)
  Receive Date: 20220905
  Receipt Date: 20220905
  Transmission Date: 20221027
  Serious: Yes (Other)
  Sender: FDA-Public Use
  Company Number: JP-NOVARTISPH-NVSJ2022JP096522

PATIENT

DRUGS (4)
  1. METHOTREXATE [Suspect]
     Active Substance: METHOTREXATE
     Indication: Granulomatosis with polyangiitis
     Dosage: UNK
     Route: 065
  2. CYCLOPHOSPHAMIDE [Suspect]
     Active Substance: CYCLOPHOSPHAMIDE
     Indication: Granulomatosis with polyangiitis
     Dosage: UNK
     Route: 041
  3. MIZORIBINE [Suspect]
     Active Substance: MIZORIBINE
     Indication: Granulomatosis with polyangiitis
     Dosage: UNK
     Route: 065
  4. RITUXIMAB [Suspect]
     Active Substance: RITUXIMAB
     Indication: Granulomatosis with polyangiitis
     Dosage: UNK
     Route: 065

REACTIONS (7)
  - Lymphoproliferative disorder [Unknown]
  - Inappropriate antidiuretic hormone secretion [Unknown]
  - Renal failure [Unknown]
  - Pulmonary tuberculosis [Unknown]
  - Pulmonary mass [Unknown]
  - Sinusitis [Unknown]
  - Product use in unapproved indication [Unknown]
